FAERS Safety Report 9598277 (Version 1)
Quarter: 2013Q4

REPORT INFORMATION
  Report Type: Spontaneous
  Country: US (occurrence: US)
  Receive Date: 20131004
  Receipt Date: 20131004
  Transmission Date: 20140711
  Serious: No
  Sender: FDA-Public Use
  Company Number: US-AMGEN-USASP2013023015

PATIENT
  Age: 42 Year
  Sex: Female
  Weight: 83.9 kg

DRUGS (6)
  1. ENBREL [Suspect]
     Indication: PRODUCT USED FOR UNKNOWN INDICATION
     Dosage: 50 MG, QWK
     Route: 058
     Dates: start: 20130319
  2. SUMATRIPTAN [Concomitant]
     Dosage: 25 MG, UNK
  3. PRAVASTATIN [Concomitant]
     Dosage: 10 MG, UNK
  4. OMEPRAZOLE [Concomitant]
     Dosage: 20 MG, UNK
  5. AMITRIPTYLIN [Concomitant]
     Dosage: 10 MG, UNK
  6. MIRALAX                            /00754501/ [Concomitant]
     Dosage: 3350 NF, POW

REACTIONS (4)
  - Injection site pruritus [Unknown]
  - Injection site reaction [Unknown]
  - Injection site erythema [Unknown]
  - Injection site pain [Unknown]
